APPROVED DRUG PRODUCT: HEPARIN SODIUM
Active Ingredient: HEPARIN SODIUM
Strength: 5,000 UNITS/ML
Dosage Form/Route: INJECTABLE;INJECTION
Application: A206552 | Product #001 | TE Code: AP
Applicant: FRESENIUS KABI USA LLC
Approved: Jun 10, 2016 | RLD: No | RS: No | Type: RX